FAERS Safety Report 26115006 (Version 1)
Quarter: 2025Q4

REPORT INFORMATION
  Report Type: Report from Study
  Country: GB (occurrence: GB)
  Receive Date: 20251203
  Receipt Date: 20251203
  Transmission Date: 20260118
  Serious: Yes (Hospitalization, Other)
  Sender: CELLTRION
  Company Number: GB-CELLTRION INC.-2024GB028717

PATIENT

DRUGS (3)
  1. INFLIXIMAB-DYYB [Suspect]
     Active Substance: INFLIXIMAB-DYYB
     Indication: Colitis ulcerative
     Dosage: 120MG PRE FILLED PEN PK2
     Route: 058
     Dates: start: 202409
  2. INFLIXIMAB-DYYB [Suspect]
     Active Substance: INFLIXIMAB-DYYB
     Dosage: 120MG PRE FILLED PEN PK2
     Route: 058
     Dates: start: 202410
  3. INFLIXIMAB-DYYB [Suspect]
     Active Substance: INFLIXIMAB-DYYB
     Dosage: INJECT ONE PRE-FILLED PEN EVERY 2 WEEKS
     Route: 058
     Dates: start: 20240926

REACTIONS (10)
  - Stoma obstruction [Unknown]
  - Pulmonary embolism [Unknown]
  - Pneumonia [Unknown]
  - Contusion [Unknown]
  - Injection site reaction [Unknown]
  - Injection site pruritus [Unknown]
  - Device issue [Unknown]
  - Exposure via skin contact [Unknown]
  - Accidental exposure to product [Unknown]
  - Incorrect dose administered [Unknown]

NARRATIVE: CASE EVENT DATE: 20251001
